FAERS Safety Report 8240968 (Version 5)
Quarter: 2013Q1

REPORT INFORMATION
  Report Type: Spontaneous
  Country: GB (occurrence: GB)
  Receive Date: 20111111
  Receipt Date: 20130212
  Transmission Date: 20140127
  Serious: Yes (Death, Hospitalization, Other)
  Sender: FDA-Public Use
  Company Number: PHFR2011GB05909

PATIENT
  Sex: Male

DRUGS (3)
  1. CLOZARIL [Suspect]
     Indication: SCHIZOPHRENIA
     Dosage: UNK
     Route: 048
     Dates: start: 20060320
  2. CLOZARIL [Suspect]
     Dosage: UNK
     Route: 048
     Dates: start: 20100807, end: 20111007
  3. CLOZARIL [Suspect]
     Dosage: UNK
     Route: 048
     Dates: end: 20111201

REACTIONS (8)
  - Depressed level of consciousness [Fatal]
  - Hypotension [Fatal]
  - Neutropenia [Fatal]
  - Cerebrovascular accident [Recovering/Resolving]
  - Renal impairment [Unknown]
  - White blood cell count decreased [Unknown]
  - Chest discomfort [Unknown]
  - General physical health deterioration [Unknown]
